FAERS Safety Report 7284415-2 (Version None)
Quarter: 2011Q1

REPORT INFORMATION
  Report Type: 
  Country: None (occurrence: None)
  Receive Date: 20110209
  Receipt Date: 20110207
  Transmission Date: 20110831
  Serious: Yes (Hospitalization)
  Sender: FDA-Public Use
  Company Number: DE-ABBOTT-10P-062-0650871-00

PATIENT
  Sex: Female
  Weight: 85 kg

DRUGS (14)
  1. BELOC-ZOK [Concomitant]
     Indication: PRODUCT USED FOR UNKNOWN INDICATION
  2. TRIAMPUR COMP [Concomitant]
     Indication: PRODUCT USED FOR UNKNOWN INDICATION
  3. PANTOZOL 40 [Concomitant]
     Indication: PRODUCT USED FOR UNKNOWN INDICATION
  4. LODROTRA 5 [Concomitant]
     Indication: PRODUCT USED FOR UNKNOWN INDICATION
  5. MTX [Concomitant]
     Indication: PRODUCT USED FOR UNKNOWN INDICATION
     Route: 058
  6. HUMIRA [Suspect]
  7. ENHEXAL 10 [Concomitant]
     Indication: PRODUCT USED FOR UNKNOWN INDICATION
  8. EURYTHOX 50 [Concomitant]
     Indication: PRODUCT USED FOR UNKNOWN INDICATION
  9. MTX [Concomitant]
  10. ENBREL [Concomitant]
     Indication: PRODUCT USED FOR UNKNOWN INDICATION
     Route: 058
  11. HUMIRA [Suspect]
     Indication: RHEUMATOID ARTHRITIS
     Route: 058
     Dates: start: 20100322, end: 20100601
  12. AMLODIPIN 5 [Concomitant]
     Indication: PRODUCT USED FOR UNKNOWN INDICATION
  13. TOREM 10 [Concomitant]
     Indication: PRODUCT USED FOR UNKNOWN INDICATION
  14. CALCILAC KT [Concomitant]
     Indication: PRODUCT USED FOR UNKNOWN INDICATION

REACTIONS (7)
  - ILL-DEFINED DISORDER [None]
  - ASTHENIA [None]
  - VERTIGO [None]
  - RHEUMATOID ARTHRITIS [None]
  - PAIN IN EXTREMITY [None]
  - ARTHRALGIA [None]
  - DYSPNOEA [None]
